FAERS Safety Report 10914814 (Version 1)
Quarter: 2015Q1

REPORT INFORMATION
  Report Type: Report from Study
  Country: US (occurrence: US)
  Receive Date: 20150313
  Receipt Date: 20150313
  Transmission Date: 20150721
  Serious: Yes (Other)
  Sender: FDA-Public Use
  Company Number: US-GILEAD-2015-0141925

PATIENT
  Age: 74 Year
  Sex: Male

DRUGS (2)
  1. INSULIN [Concomitant]
     Active Substance: INSULIN NOS
  2. RANOLAZINE [Suspect]
     Active Substance: RANOLAZINE
     Indication: ANGINA PECTORIS
     Dosage: 500 MG, UNK
     Route: 048

REACTIONS (5)
  - Non-Hodgkin^s lymphoma [Unknown]
  - Coeliac disease [Not Recovered/Not Resolved]
  - Ulcer haemorrhage [Unknown]
  - Stent placement [Unknown]
  - Peripheral venous disease [Not Recovered/Not Resolved]

NARRATIVE: CASE EVENT DATE: 2006
